FAERS Safety Report 8978263 (Version 1)
Quarter: 2012Q4

REPORT INFORMATION
  Report Type: Report from Study
  Country: JP (occurrence: JP)
  Receive Date: 20121220
  Receipt Date: 20121220
  Transmission Date: 20130627
  Serious: Yes (Hospitalization)
  Sender: FDA-Public Use
  Company Number: JP-PFIZER INC-2012317473

PATIENT
  Age: 60 Year
  Sex: Female

DRUGS (20)
  1. AZULFIDINE EN [Suspect]
     Indication: RA
     Dosage: 500 mg, 1x/day
     Route: 048
     Dates: start: 20070717, end: 20090331
  2. ACTEMRA [Suspect]
     Indication: RA
     Dosage: 380 mg once in four weeks
     Route: 041
     Dates: start: 20090303, end: 20090303
  3. ACTEMRA [Suspect]
     Dosage: 420 mg once in four weeks
     Route: 041
     Dates: start: 20090331, end: 20090331
  4. ACTEMRA [Suspect]
     Dosage: 420 mg once in four weeks
     Route: 041
     Dates: start: 20090428, end: 20090428
  5. ACTEMRA [Suspect]
     Dosage: 420 mg once in four weeks
     Route: 041
     Dates: start: 20090521, end: 20090521
  6. ACTEMRA [Suspect]
     Dosage: 460 mg once in four weeks
     Route: 041
     Dates: start: 20090618, end: 20090618
  7. ACTEMRA [Suspect]
     Dosage: 460 mg once in four weeks
     Route: 041
     Dates: start: 20090714, end: 20090714
  8. ACTEMRA [Suspect]
     Dosage: 460 mg once in four weeks
     Route: 041
     Dates: start: 20090828
  9. NEOISCOTIN [Suspect]
     Indication: TUBERCULOSIS PROPHYLAXIS
     Dosage: 300 mg, 1x/day
     Route: 048
     Dates: start: 20080522, end: 20090331
  10. VANCOMYCIN [Suspect]
     Dosage: 1.5 g, 1x/day
     Route: 041
     Dates: start: 20090812, end: 20090820
  11. METHOTREXATE [Concomitant]
     Route: 048
  12. PREDNISOLONE [Concomitant]
     Dosage: 5 mg, 1x/day
     Route: 048
  13. PYRIDOXAL PHOSPHATE [Concomitant]
     Dosage: 10 mg, 1x/day
     Route: 048
     Dates: end: 20090331
  14. FAMOTIDINE [Concomitant]
     Dosage: 40 mg, 1x/day
     Route: 048
  15. NEUROTROPIN [Concomitant]
     Dosage: 4 DF, 1x/day
     Route: 048
     Dates: end: 20090715
  16. MUCOSTA [Concomitant]
     Dosage: 200 mg, 1x/day
     Route: 048
     Dates: end: 20090715
  17. FOLIAMIN [Concomitant]
     Dosage: 5 mg, 1x/day
     Route: 048
  18. LOXOPROFEN SODIUM [Concomitant]
     Dosage: UNK
  19. BLOPRESS [Concomitant]
     Dosage: 8 mg, 1x/day
     Route: 048
  20. METHOTREXATE [Concomitant]
     Dosage: 8 mg, weekly
     Route: 048
     Dates: start: 20090521

REACTIONS (3)
  - Pelvic abscess [Recovered/Resolved]
  - Hepatic function abnormal [Recovered/Resolved]
  - White blood cell count decreased [Recovered/Resolved]
